FAERS Safety Report 9099671 (Version 2)
Quarter: 2013Q3

REPORT INFORMATION
  Report Type: Report from Study
  Country: GB (occurrence: GB)
  Receive Date: 20130214
  Receipt Date: 20130704
  Transmission Date: 20140515
  Serious: Yes (Death, Hospitalization, Other)
  Sender: FDA-Public Use
  Company Number: GB-JNJFOC-20130206649

PATIENT
  Age: 64 Year
  Sex: Female
  Weight: 56 kg

DRUGS (2)
  1. REMICADE [Suspect]
     Indication: RHEUMATOID ARTHRITIS
     Route: 042
     Dates: start: 20030207, end: 20050615
  2. METHOTREXATE [Suspect]
     Indication: RHEUMATOID ARTHRITIS
     Route: 065

REACTIONS (3)
  - Metastases to liver [Fatal]
  - Lung neoplasm malignant [Unknown]
  - Pancreatic carcinoma [Unknown]
